FAERS Safety Report 12330605 (Version 1)
Quarter: 2016Q2

REPORT INFORMATION
  Report Type: Spontaneous
  Country: GB (occurrence: GB)
  Receive Date: 20160504
  Receipt Date: 20160504
  Transmission Date: 20160815
  Serious: Yes (Hospitalization)
  Sender: FDA-Public Use
  Company Number: GB-ALKEM-001620

PATIENT
  Age: 41 Year

DRUGS (5)
  1. GABAPENTIN. [Suspect]
     Active Substance: GABAPENTIN
     Indication: PRODUCT USED FOR UNKNOWN INDICATION
     Route: 048
  2. METHADONE [Concomitant]
     Active Substance: METHADONE HYDROCHLORIDE
     Route: 048
  3. QUETIAPINE/QUETIAPINE FUMARATE [Suspect]
     Active Substance: QUETIAPINE FUMARATE
     Indication: PRODUCT USED FOR UNKNOWN INDICATION
     Dosage: AT NIGHT.
     Route: 048
     Dates: start: 201507
  4. ETHANOL [Concomitant]
     Active Substance: ALCOHOL
     Indication: SUBSTANCE ABUSE
     Dosage: ONGOING
  5. HEROIN [Concomitant]
     Active Substance: DIACETYLMORPHINE
     Indication: SUBSTANCE ABUSE
     Dosage: ONGOING

REACTIONS (1)
  - Pancreatitis [Unknown]
